FAERS Safety Report 15423811 (Version 1)
Quarter: 2018Q3

REPORT INFORMATION
  Report Type: Spontaneous
  Country: US (occurrence: US)
  Receive Date: 20180920
  Receipt Date: 20180920
  Transmission Date: 20181010
  Serious: Yes (Disabling, Other)
  Sender: FDA-Public Use
  Company Number: None

PATIENT
  Age: 17 Year
  Sex: Male
  Weight: 65.25 kg

DRUGS (1)
  1. MONTEKULAST SOD TABS 10MG GENERIC FOR: SINGULAR TABS [Suspect]
     Active Substance: MONTELUKAST SODIUM
     Indication: ASTHMA
     Dosage: ?          QUANTITY:1 TABLET(S);?
     Route: 048
     Dates: start: 20130301, end: 20180301

REACTIONS (5)
  - Anxiety [None]
  - Suicidal ideation [None]
  - Hallucination, auditory [None]
  - Poor quality sleep [None]
  - Nightmare [None]

NARRATIVE: CASE EVENT DATE: 20180401
